FAERS Safety Report 4526181-7 (Version None)
Quarter: 2004Q4

REPORT INFORMATION
  Report Type: 
  Country: None (occurrence: None)
  Receive Date: 20041210
  Receipt Date: 20041130
  Transmission Date: 20050328
  Serious: Yes (Hospitalization)
  Sender: FDA-Public Use
  Company Number: 2004-122995-NL

PATIENT
  Age: 52 Year
  Sex: Female

DRUGS (3)
  1. MIRTAZAPINE [Suspect]
     Indication: DEPRESSION
     Dosage: 45 MG
     Route: 048
  2. AMITRIPTYLINE HYDROCHLORIDE [Concomitant]
  3. DIAZEPAM [Concomitant]

REACTIONS (7)
  - DEPRESSION [None]
  - EMOTIONAL DISTRESS [None]
  - ILEAL STENOSIS [None]
  - INFECTION [None]
  - POST PROCEDURAL COMPLICATION [None]
  - SURGICAL PROCEDURE REPEATED [None]
  - THERAPEUTIC RESPONSE DECREASED [None]
